FAERS Safety Report 7439680-5 (Version None)
Quarter: 2011Q2

REPORT INFORMATION
  Report Type: 
  Country: None (occurrence: None)
  Receive Date: 20110427
  Receipt Date: 20110414
  Transmission Date: 20111010
  Serious: Yes (Hospitalization, Other)
  Sender: FDA-Public Use
  Company Number: PHHY2011DE31741

PATIENT
  Sex: Male
  Weight: 82 kg

DRUGS (4)
  1. ALISKIREN [Suspect]
     Indication: HYPERTENSION
     Dosage: UNK
     Dates: start: 20091022
  2. VALSARTAN [Suspect]
     Dosage: UNK
     Dates: start: 20090224
  3. BETA BLOCKING AGENTS [Concomitant]
  4. CALCIUM CHANNEL BLOCKERS [Concomitant]

REACTIONS (3)
  - MYOCARDIAL INFARCTION [None]
  - HEART RATE DECREASED [None]
  - WITHDRAWAL HYPERTENSION [None]
